FAERS Safety Report 6600093-7 (Version None)
Quarter: 2010Q1

REPORT INFORMATION
  Report Type: 
  Country: None (occurrence: None)
  Receive Date: 20100224
  Receipt Date: 20100216
  Transmission Date: 20100710
  Serious: Yes (Other)
  Sender: FDA-Public Use
  Company Number: PHHY2010SE01276

PATIENT
  Sex: Female

DRUGS (5)
  1. FEMARA [Suspect]
     Indication: BREAST CANCER
     Dosage: 2.5 MG, QD
     Dates: start: 20091001
  2. HYPERICUM [Concomitant]
     Indication: DEPRESSION
     Dosage: UNK MG, QW2
     Route: 058
  3. BEHEPAN [Concomitant]
  4. MAGNESIUM [Concomitant]
  5. ABSINT [Concomitant]
     Indication: GASTROINTESTINAL DISORDER

REACTIONS (12)
  - ABDOMINAL DISCOMFORT [None]
  - CHEST DISCOMFORT [None]
  - CHEST PAIN [None]
  - CONSTIPATION [None]
  - DYSPEPSIA [None]
  - EATING DISORDER [None]
  - EYE DISORDER [None]
  - HYPERHIDROSIS [None]
  - MYALGIA [None]
  - NAUSEA [None]
  - OESOPHAGEAL DISORDER [None]
  - THROAT IRRITATION [None]
